FAERS Safety Report 12264117 (Version 1)
Quarter: 2016Q2

REPORT INFORMATION
  Report Type: Spontaneous
  Country: US (occurrence: US)
  Receive Date: 20160413
  Receipt Date: 20160413
  Transmission Date: 20160815
  Serious: No
  Sender: FDA-Public Use
  Company Number: US-JNJFOC-20160317236

PATIENT
  Age: 52 Year
  Sex: Male
  Weight: 94.35 kg

DRUGS (3)
  1. IBUPROFEN. [Suspect]
     Active Substance: IBUPROFEN
     Indication: TOOTHACHE
     Route: 048
  2. METOPROLOL. [Concomitant]
     Active Substance: METOPROLOL
     Indication: HYPERTENSION
     Route: 065
  3. LISTERINE TOTAL CARE ANTICAVITY - FRESH MINT [Suspect]
     Active Substance: SODIUM FLUORIDE
     Indication: BREATH ODOUR
     Dosage: TOOK A SWIG, A MOUTHFUL
     Route: 048
     Dates: start: 20160316

REACTIONS (1)
  - Drug screen positive [Unknown]

NARRATIVE: CASE EVENT DATE: 20160316
